FAERS Safety Report 7860537-X (Version None)
Quarter: 2011Q4

REPORT INFORMATION
  Report Type: 
  Country: None (occurrence: None)
  Receive Date: 20111027
  Receipt Date: 20111024
  Transmission Date: 20120403
  Serious: No
  Sender: FDA-Public Use
  Company Number: US-PFIZER INC-2011258525

PATIENT
  Age: 3 Year
  Sex: Female

DRUGS (1)
  1. JUNIOR STRENGTH ADVIL [Suspect]
     Dosage: UNK
     Route: 048
     Dates: start: 20111001

REACTIONS (1)
  - PSYCHOMOTOR HYPERACTIVITY [None]
